FAERS Safety Report 4777694-4 (Version None)
Quarter: 2005Q3

REPORT INFORMATION
  Report Type: 
  Country: None (occurrence: None)
  Receive Date: 20050923
  Receipt Date: 20050708
  Transmission Date: 20060218
  Serious: Yes (Death, Hospitalization)
  Sender: FDA-Public Use
  Company Number: US-MERCK-0507USA01258

PATIENT
  Age: 75 Year
  Sex: Female
  Weight: 82 kg

DRUGS (11)
  1. METHOTREXATE [Concomitant]
     Indication: RHEUMATOID ARTHRITIS
     Route: 065
     Dates: start: 19900101, end: 20030101
  2. MICROX [Concomitant]
     Indication: HYPERTENSION
     Route: 065
     Dates: start: 20030201, end: 20030601
  3. PAXIL [Concomitant]
     Indication: DEPRESSION
     Route: 065
     Dates: start: 19990901, end: 20010801
  4. CELEXA [Concomitant]
     Indication: DEPRESSION
     Route: 065
     Dates: start: 20010101, end: 20030101
  5. ZYPREXA [Concomitant]
     Indication: DEMENTIA
     Route: 065
     Dates: start: 20010101, end: 20030101
  6. ALTACE [Concomitant]
     Indication: HYPERTENSION
     Route: 065
     Dates: start: 20010101, end: 20030101
  7. VIOXX [Suspect]
     Indication: RHEUMATOID ARTHRITIS
     Route: 048
     Dates: start: 20010608, end: 20030621
  8. VIOXX [Suspect]
     Route: 048
     Dates: start: 20010608, end: 20030621
  9. VIOXX [Suspect]
     Indication: OSTEOARTHRITIS
     Route: 048
     Dates: start: 20010608, end: 20030621
  10. VIOXX [Suspect]
     Route: 048
     Dates: start: 20010608, end: 20030621
  11. ASPIRIN [Concomitant]
     Indication: PROPHYLAXIS
     Route: 065
     Dates: start: 20030201, end: 20030501

REACTIONS (15)
  - ATRIOVENTRICULAR BLOCK COMPLETE [None]
  - CARDIAC ARREST [None]
  - CARDIAC FAILURE CONGESTIVE [None]
  - CAROTID ARTERY STENOSIS [None]
  - CORONARY ARTERY DISEASE [None]
  - DELIRIUM [None]
  - DEPRESSION [None]
  - HALLUCINATION [None]
  - MENTAL STATUS CHANGES [None]
  - MYOCARDIAL INFARCTION [None]
  - ORTHOSTATIC HYPOTENSION [None]
  - PERIPHERAL VASCULAR DISORDER [None]
  - SYNCOPE [None]
  - URINARY TRACT INFECTION [None]
  - URINE ANALYSIS ABNORMAL [None]
